FAERS Safety Report 23848307 (Version 4)
Quarter: 2024Q3

REPORT INFORMATION
  Report Type: Spontaneous
  Country: US (occurrence: US)
  Receive Date: 20240513
  Receipt Date: 20240913
  Transmission Date: 20241016
  Serious: Yes (Other)
  Sender: BRISTOL MYERS SQUIBB
  Company Number: US-BRISTOL-MYERS SQUIBB COMPANY-2024-073801

PATIENT
  Age: 74 Year
  Sex: Male

DRUGS (2)
  1. POMALYST [Suspect]
     Active Substance: POMALIDOMIDE
     Indication: Primary amyloidosis
     Route: 048
     Dates: start: 20240410
  2. POMALYST [Suspect]
     Active Substance: POMALIDOMIDE
     Indication: Amyloidosis
     Route: 048

REACTIONS (8)
  - White blood cell count decreased [Unknown]
  - Nausea [Unknown]
  - Off label use [Unknown]
  - Full blood count increased [Unknown]
  - Full blood count abnormal [Unknown]
  - Sepsis [Unknown]
  - Joint swelling [Unknown]
  - Peripheral swelling [Unknown]
